FAERS Safety Report 25733896 (Version 1)
Quarter: 2025Q3

REPORT INFORMATION
  Report Type: Spontaneous
  Country: EU (occurrence: EU)
  Receive Date: 20250828
  Receipt Date: 20250828
  Transmission Date: 20251020
  Serious: Yes (Other)
  Sender: AUROBINDO
  Company Number: EU-ORPHANEU-2025005581

PATIENT

DRUGS (4)
  1. IBUPROFEN [Suspect]
     Active Substance: IBUPROFEN
     Indication: Tricuspid valve disease
     Dosage: 400 MILLIGRAM, 3 TIMES A DAY
     Route: 064
  2. IBUPROFEN [Suspect]
     Active Substance: IBUPROFEN
     Dosage: 600 MILLIGRAM, 3 TIMES A DAY
     Route: 064
  3. INDOMETHACIN [Suspect]
     Active Substance: INDOMETHACIN
     Indication: Tricuspid valve disease
     Dosage: 100 MILLIGRAM, 3 TIMES A DAY
     Route: 064
  4. INDOMETHACIN [Suspect]
     Active Substance: INDOMETHACIN
     Dosage: 50 MILLIGRAM, 3 TIMES A DAY
     Route: 064

REACTIONS (4)
  - Pericardial effusion [Unknown]
  - Renal impairment [Unknown]
  - Drug effective for unapproved indication [Recovered/Resolved]
  - Foetal exposure during pregnancy [Recovered/Resolved]
